FAERS Safety Report 6369407-X (Version None)
Quarter: 2009Q3

REPORT INFORMATION
  Report Type: 
  Country: None (occurrence: None)
  Receive Date: 20090917
  Receipt Date: 20090910
  Transmission Date: 20100115
  Serious: Yes (Hospitalization)
  Sender: FDA-Public Use
  Company Number: 2008AL009101

PATIENT
  Age: 79 Year
  Sex: Female

DRUGS (22)
  1. DIGOXIN [Suspect]
     Indication: CARDIAC MURMUR
     Dosage: 0.125MG, DAILY, PO
     Route: 048
  2. COREG [Concomitant]
  3. ASPIRIN [Concomitant]
  4. SYNTHROID [Concomitant]
  5. PLAVIX [Concomitant]
  6. COLACE [Concomitant]
  7. LACTULOSE [Concomitant]
  8. COUMADIN [Concomitant]
  9. LEVOTHYROXINE SODIUM [Concomitant]
  10. DETROL [Concomitant]
  11. TRIGOSAMINE [Concomitant]
  12. BENICAR [Concomitant]
  13. LOTREL [Concomitant]
  14. LASIX [Concomitant]
  15. LOPRESSOR [Concomitant]
  16. STOOL SOFTENER(UNSPECIFIED) [Concomitant]
  17. CELEBREX [Concomitant]
  18. CYANOCOBALAMIN [Concomitant]
  19. PROPOXYPHENE HCL AND ACETAMINOPHEN [Concomitant]
  20. CARVEDILOL [Concomitant]
  21. HYDROCODONE BITARTRATE AND ACETAMINOPHEN [Concomitant]
  22. DOXYCYCLINE [Concomitant]

REACTIONS (14)
  - ACUTE PRERENAL FAILURE [None]
  - ATRIAL FIBRILLATION [None]
  - CARDIAC FAILURE CONGESTIVE [None]
  - COR PULMONALE [None]
  - DEHYDRATION [None]
  - HYPERTENSION [None]
  - MULTIPLE MYELOMA [None]
  - PRESYNCOPE [None]
  - RENAL DISORDER [None]
  - TACHYCARDIA [None]
  - THERAPEUTIC AGENT TOXICITY [None]
  - THROMBOCYTOSIS [None]
  - TREMOR [None]
  - URINARY TRACT INFECTION [None]
